FAERS Safety Report 13768211 (Version 1)
Quarter: 2017Q3

REPORT INFORMATION
  Report Type: Spontaneous
  Country: US (occurrence: US)
  Receive Date: 20170719
  Receipt Date: 20170719
  Transmission Date: 20171127
  Serious: Yes (Hospitalization, Other)
  Sender: FDA-Public Use
  Company Number: US-ZYDUS-015779

PATIENT
  Age: 71 Year
  Sex: Male

DRUGS (2)
  1. TICAGRELOR. [Suspect]
     Active Substance: TICAGRELOR
     Indication: PRODUCT USED FOR UNKNOWN INDICATION
     Route: 065
  2. WARFARIN [Suspect]
     Active Substance: WARFARIN
     Indication: ATRIAL FIBRILLATION
     Route: 065

REACTIONS (13)
  - Bronchial ulceration [Unknown]
  - Rales [Recovered/Resolved]
  - Cough [Recovered/Resolved]
  - Epistaxis [Recovered/Resolved]
  - Condition aggravated [Recovered/Resolved]
  - Dyspnoea exertional [Recovered/Resolved]
  - Bronchial wall thickening [Recovered/Resolved]
  - Haemoptysis [Recovered/Resolved]
  - Heart rate irregular [Recovered/Resolved]
  - Bronchial haemorrhage [Recovered/Resolved]
  - Hypoxia [Recovered/Resolved]
  - Melaena [Recovered/Resolved]
  - Microcytic anaemia [Recovered/Resolved]
